FAERS Safety Report 14285151 (Version 3)
Quarter: 2018Q1

REPORT INFORMATION
  Report Type: Report from Study
  Country: US (occurrence: US)
  Receive Date: 20171214
  Receipt Date: 20180117
  Transmission Date: 20180509
  Serious: Yes (Other)
  Sender: FDA-Public Use
  Company Number: US-PFIZER INC-2017499623

PATIENT
  Age: 73 Year
  Sex: Female

DRUGS (5)
  1. IBRANCE [Suspect]
     Active Substance: PALBOCICLIB
     Dosage: 125 MG, DAILY
     Route: 048
     Dates: start: 20171110
  2. IBRANCE [Suspect]
     Active Substance: PALBOCICLIB
     Dosage: 75 MG, CYCLIC, (DAILY/3 WEEKS ON, 1 WEEK OFF)
     Route: 048
     Dates: start: 20171208
  3. IBRANCE [Suspect]
     Active Substance: PALBOCICLIB
     Dosage: 100 MG, CYCLIC, (DAILY/3 WEEKS ON, 1 WEEK OFF )
     Route: 048
     Dates: start: 20171110, end: 20171207
  4. FEMARA [Concomitant]
     Active Substance: LETROZOLE
     Dosage: UNK
     Dates: start: 2017
  5. IBRANCE [Suspect]
     Active Substance: PALBOCICLIB
     Indication: BREAST CANCER
     Dosage: 100 MG, DAILY
     Route: 048
     Dates: start: 20171110

REACTIONS (21)
  - Alopecia [Unknown]
  - White blood cell count increased [Unknown]
  - Headache [Recovering/Resolving]
  - Dizziness [Recovering/Resolving]
  - Nasopharyngitis [Unknown]
  - Chills [Unknown]
  - Bone marrow failure [Unknown]
  - Condition aggravated [Recovering/Resolving]
  - Arthralgia [Recovering/Resolving]
  - Sinusitis [Unknown]
  - Energy increased [Unknown]
  - Feeling abnormal [Unknown]
  - Listless [Not Recovered/Not Resolved]
  - Head discomfort [Recovering/Resolving]
  - Ear pain [Unknown]
  - Nausea [Recovering/Resolving]
  - Pain in extremity [Recovering/Resolving]
  - Burning sensation [Unknown]
  - Viral infection [Unknown]
  - Decreased appetite [Unknown]
  - White blood cell count decreased [Unknown]

NARRATIVE: CASE EVENT DATE: 2017
